FAERS Safety Report 15502777 (Version 1)
Quarter: 2018Q4

REPORT INFORMATION
  Report Type: Report from Study
  Country: US (occurrence: US)
  Receive Date: 20181015
  Receipt Date: 20181015
  Transmission Date: 20190205
  Serious: No
  Sender: FDA-Public Use
  Company Number: US-AMGEN INC.-USASL2018122500

PATIENT
  Age: 29 Year
  Sex: Female

DRUGS (1)
  1. AIMOVIG [Suspect]
     Active Substance: ERENUMAB-AOOE
     Indication: MIGRAINE WITHOUT AURA
     Dosage: 140 ,UNK
     Route: 065
     Dates: start: 20180802

REACTIONS (3)
  - Pain [Unknown]
  - Tremor [Unknown]
  - Muscle twitching [Unknown]

NARRATIVE: CASE EVENT DATE: 201808
